FAERS Safety Report 19894807 (Version 9)
Quarter: 2023Q2

REPORT INFORMATION
  Report Type: Report from Study
  Country: US (occurrence: US)
  Receive Date: 20210928
  Receipt Date: 20230619
  Transmission Date: 20230722
  Serious: Yes (Other)
  Sender: FDA-Public Use
  Company Number: US-ABBVIE-21K-163-4089073-00

PATIENT
  Sex: Male

DRUGS (7)
  1. SKYRIZI [Suspect]
     Active Substance: RISANKIZUMAB-RZAA
     Indication: Psoriasis
     Route: 058
  2. SKYRIZI [Suspect]
     Active Substance: RISANKIZUMAB-RZAA
     Indication: Psoriasis
     Route: 058
  3. SKYRIZI [Suspect]
     Active Substance: RISANKIZUMAB-RZAA
     Route: 058
     Dates: start: 202107
  4. SKYRIZI [Suspect]
     Active Substance: RISANKIZUMAB-RZAA
     Route: 058
  5. MODERNA COVID-19 VACCINE [Concomitant]
     Active Substance: ELASOMERAN
     Indication: COVID-19 immunisation
     Dosage: TIME INTERVAL: 1 TOTAL: COVID VACCINE, 1ST DOSE
     Route: 030
  6. HYDRALAZINE [Concomitant]
     Active Substance: HYDRALAZINE HYDROCHLORIDE
     Indication: Product used for unknown indication
  7. METOPROLOL [Concomitant]
     Active Substance: METOPROLOL
     Indication: Product used for unknown indication

REACTIONS (14)
  - Skin cancer [Unknown]
  - Post procedural complication [Unknown]
  - Rash [Not Recovered/Not Resolved]
  - Diabetic foot [Not Recovered/Not Resolved]
  - Abscess limb [Not Recovered/Not Resolved]
  - Diabetes mellitus [Not Recovered/Not Resolved]
  - Head injury [Recovered/Resolved]
  - Spondylitis [Unknown]
  - Neck pain [Not Recovered/Not Resolved]
  - Limb injury [Unknown]
  - Back pain [Not Recovered/Not Resolved]
  - Nephropathy [Unknown]
  - Blood blister [Unknown]
  - Fall [Unknown]

NARRATIVE: CASE EVENT DATE: 20210101
